FAERS Safety Report 9306269 (Version 3)
Quarter: 2013Q4

REPORT INFORMATION
  Report Type: Spontaneous
  Country: US (occurrence: None)
  Receive Date: 20130429
  Receipt Date: 20131114
  Transmission Date: 20140711
  Serious: Yes (Hospitalization, Other)
  Sender: FDA-Public Use
  Company Number: 2012034208

PATIENT
  Age: 33 Year
  Sex: Male
  Weight: 79.38 kg

DRUGS (12)
  1. PRIVIGEN [Suspect]
     Indication: IMMUNODEFICIENCY COMMON VARIABLE
     Dosage: 45 G 1X/WEEK, PER MFG. GUIDELINES INTRAVENOUS (NOT OTHERWISE SPECIFIED)
     Route: 042
     Dates: start: 20121206, end: 20121206
  2. ACETAMINOPHEN (PARACETAMOL) [Concomitant]
  3. DIPHENHYDRAMINE (DIPHENYDRAMINE) [Concomitant]
  4. SODIUM CHLORIDE [Concomitant]
  5. EPI-PEN (EPINEPHRINE HYDROCHLORIDE) [Concomitant]
  6. DORIBAX (ALL OTHER THERAPEUTIC PRODUCTS) [Concomitant]
  7. OXCARBAZEPINE (OXCARBAZEPINE) [Concomitant]
  8. PREDNISONE (PREDNISONE) [Concomitant]
  9. LAMOTRIGINE (LAMOTRIGINE) [Concomitant]
  10. CLONAZEPAM (CLONAZEPAM) (CLONAZEPAM) [Concomitant]
  11. TERBINEX (TERBINAFINE) [Concomitant]
  12. ONDANSETRON (ONDANSETRON) [Concomitant]

REACTIONS (5)
  - Pneumonia [None]
  - Headache [None]
  - Pain [None]
  - Infusion related reaction [None]
  - Transient ischaemic attack [None]
